FAERS Safety Report 7554075-1 (Version None)
Quarter: 2011Q2

REPORT INFORMATION
  Report Type: 
  Country: None (occurrence: None)
  Receive Date: 20110617
  Receipt Date: 20110608
  Transmission Date: 20111010
  Serious: Yes (Other)
  Sender: FDA-Public Use
  Company Number: ES-ABBOTT-11P-144-0731152-00

PATIENT
  Age: 27 Year
  Sex: Female

DRUGS (1)
  1. HUMIRA [Suspect]
     Indication: CROHN'S DISEASE
     Dosage: 160 MG ONCE (BASELINE), THEN 80 MG WEEK 2
     Route: 058
     Dates: start: 20090803, end: 20110201

REACTIONS (1)
  - ABORTION SPONTANEOUS [None]
